FAERS Safety Report 7638038-3 (Version None)
Quarter: 2011Q3

REPORT INFORMATION
  Report Type: 
  Country: None (occurrence: None)
  Receive Date: 20110727
  Receipt Date: 20110719
  Transmission Date: 20111222
  Serious: Yes (Hospitalization, Other)
  Sender: FDA-Public Use
  Company Number: US-BAYER-2011-015799

PATIENT
  Age: 48 Year
  Sex: Female
  Weight: 77 kg

DRUGS (5)
  1. YASMIN [Suspect]
     Indication: PREMENSTRUAL SYNDROME
     Dosage: UNK
     Route: 048
     Dates: start: 20070401, end: 20080201
  2. IMITREX [Concomitant]
     Dosage: UNK
     Dates: start: 19890101, end: 20080101
  3. PREVACID [Concomitant]
     Indication: GASTROOESOPHAGEAL REFLUX DISEASE
     Dosage: 30 MG, QD
     Route: 048
  4. LEXAPRO [Concomitant]
     Indication: DEPRESSION
     Dosage: 10 MG, UNK
     Route: 048
  5. YAZ [Suspect]
     Indication: PREMENSTRUAL SYNDROME
     Dosage: UNK
     Route: 048
     Dates: start: 20070401, end: 20080201

REACTIONS (2)
  - CEREBROVASCULAR ACCIDENT [None]
  - PAIN [None]
